FAERS Safety Report 7941039 (Version 2)
Quarter: 2012Q4

REPORT INFORMATION
  Report Type: Spontaneous
  Country: US (occurrence: None)
  Receive Date: 20110410
  Receipt Date: 20121009
  Transmission Date: 20130627
  Serious: Yes (Other)
  Sender: FDA-Public Use
  Company Number: 2011MA003609

PATIENT
  Sex: Male

DRUGS (8)
  1. METOCLOPRAMIDE HYDROCHLORIDE [Suspect]
     Indication: PRODUCT USED FOR UNKNOWN INDICATION
     Dates: start: 20070527, end: 201004
  2. COUMADIN [Concomitant]
  3. PHENYTOIN [Concomitant]
  4. OMEPRAZOLE [Concomitant]
  5. AMLODIPINE [Concomitant]
  6. DILANTIN [Concomitant]
  7. SERTRALINE [Concomitant]
  8. PROCHLORPERAZINE [Concomitant]

REACTIONS (2)
  - Tardive dyskinesia [None]
  - Family stress [None]
